FAERS Safety Report 8520598-1 (Version None)
Quarter: 2012Q3

REPORT INFORMATION
  Report Type: 
  Country: None (occurrence: None)
  Receive Date: 20120719
  Receipt Date: 20120712
  Transmission Date: 20120928
  Serious: Yes (Other)
  Sender: FDA-Public Use
  Company Number: US-PFIZER INC-2012168750

PATIENT
  Sex: Female
  Weight: 65.76 kg

DRUGS (1)
  1. GLUCOTROL XL [Suspect]
     Indication: TYPE 2 DIABETES MELLITUS
     Dosage: 5 MG, 1X/DAY
     Route: 048

REACTIONS (4)
  - ANGINA PECTORIS [None]
  - NEUROPATHY PERIPHERAL [None]
  - CORONARY ARTERY OCCLUSION [None]
  - LUNG DISORDER [None]
